FAERS Safety Report 8151958-9 (Version None)
Quarter: 2012Q1

REPORT INFORMATION
  Report Type: 
  Country: None (occurrence: None)
  Receive Date: 20120221
  Receipt Date: 20120216
  Transmission Date: 20120608
  Serious: No
  Sender: FDA-Public Use
  Company Number: US-PFIZER INC-2012042525

PATIENT
  Sex: Female
  Weight: 45.351 kg

DRUGS (2)
  1. FLECTOR [Suspect]
     Indication: BACK PAIN
     Dosage: UNK
     Route: 062
     Dates: start: 20120116, end: 20120101
  2. DILAUDID [Concomitant]
     Indication: PAIN
     Dosage: UNK

REACTIONS (1)
  - MALAISE [None]
